FAERS Safety Report 24691880 (Version 8)
Quarter: 2025Q3

REPORT INFORMATION
  Report Type: Spontaneous
  Country: EU (occurrence: EU)
  Receive Date: 20241203
  Receipt Date: 20250728
  Transmission Date: 20251020
  Serious: Yes (Life-Threatening, Other)
  Sender: MYLAN
  Company Number: EU-ROCHE-10000084302

PATIENT
  Age: 16 Year
  Sex: Male
  Weight: 74.95 kg

DRUGS (476)
  1. METHOTREXATE [Suspect]
     Active Substance: METHOTREXATE
     Indication: Non-Hodgkin^s lymphoma
     Route: 037
     Dates: start: 20240726
  2. METHOTREXATE [Suspect]
     Active Substance: METHOTREXATE
     Dates: start: 20240726
  3. METHOTREXATE [Suspect]
     Active Substance: METHOTREXATE
     Dates: start: 20240726
  4. METHOTREXATE [Suspect]
     Active Substance: METHOTREXATE
     Route: 037
     Dates: start: 20240726
  5. METHOTREXATE [Suspect]
     Active Substance: METHOTREXATE
     Route: 037
     Dates: start: 20240902
  6. METHOTREXATE [Suspect]
     Active Substance: METHOTREXATE
     Dates: start: 20240902
  7. METHOTREXATE [Suspect]
     Active Substance: METHOTREXATE
     Dates: start: 20240902
  8. METHOTREXATE [Suspect]
     Active Substance: METHOTREXATE
     Route: 037
     Dates: start: 20240902
  9. METHOTREXATE [Suspect]
     Active Substance: METHOTREXATE
     Route: 037
     Dates: start: 20240902
  10. METHOTREXATE [Suspect]
     Active Substance: METHOTREXATE
     Route: 037
     Dates: start: 20240902
  11. METHOTREXATE [Suspect]
     Active Substance: METHOTREXATE
     Dates: start: 20240902
  12. METHOTREXATE [Suspect]
     Active Substance: METHOTREXATE
     Dates: start: 20240902
  13. IFOSFAMIDE [Suspect]
     Active Substance: IFOSFAMIDE
     Indication: Non-Hodgkin^s lymphoma
     Route: 042
     Dates: start: 20240802
  14. IFOSFAMIDE [Suspect]
     Active Substance: IFOSFAMIDE
     Dates: start: 20240802
  15. IFOSFAMIDE [Suspect]
     Active Substance: IFOSFAMIDE
     Dates: start: 20240802
  16. IFOSFAMIDE [Suspect]
     Active Substance: IFOSFAMIDE
     Route: 042
     Dates: start: 20240802
  17. IFOSFAMIDE [Suspect]
     Active Substance: IFOSFAMIDE
  18. IFOSFAMIDE [Suspect]
     Active Substance: IFOSFAMIDE
  19. IFOSFAMIDE [Suspect]
     Active Substance: IFOSFAMIDE
     Route: 042
  20. IFOSFAMIDE [Suspect]
     Active Substance: IFOSFAMIDE
     Route: 042
  21. IFOSFAMIDE [Suspect]
     Active Substance: IFOSFAMIDE
     Route: 042
  22. IFOSFAMIDE [Suspect]
     Active Substance: IFOSFAMIDE
  23. IFOSFAMIDE [Suspect]
     Active Substance: IFOSFAMIDE
  24. IFOSFAMIDE [Suspect]
     Active Substance: IFOSFAMIDE
     Route: 042
  25. LENOGRASTIM [Suspect]
     Active Substance: LENOGRASTIM
     Indication: Non-Hodgkin^s lymphoma
  26. LENOGRASTIM [Suspect]
     Active Substance: LENOGRASTIM
     Route: 042
  27. LENOGRASTIM [Suspect]
     Active Substance: LENOGRASTIM
     Route: 042
  28. LENOGRASTIM [Suspect]
     Active Substance: LENOGRASTIM
  29. LENOGRASTIM [Suspect]
     Active Substance: LENOGRASTIM
     Route: 042
  30. LENOGRASTIM [Suspect]
     Active Substance: LENOGRASTIM
     Route: 042
  31. LENOGRASTIM [Suspect]
     Active Substance: LENOGRASTIM
  32. LENOGRASTIM [Suspect]
     Active Substance: LENOGRASTIM
  33. LENOGRASTIM [Suspect]
     Active Substance: LENOGRASTIM
  34. LENOGRASTIM [Suspect]
     Active Substance: LENOGRASTIM
     Route: 042
  35. LENOGRASTIM [Suspect]
     Active Substance: LENOGRASTIM
  36. LENOGRASTIM [Suspect]
     Active Substance: LENOGRASTIM
     Route: 042
  37. LENOGRASTIM [Suspect]
     Active Substance: LENOGRASTIM
     Indication: Non-Hodgkin^s lymphoma
  38. LENOGRASTIM [Suspect]
     Active Substance: LENOGRASTIM
     Route: 058
  39. LENOGRASTIM [Suspect]
     Active Substance: LENOGRASTIM
     Route: 058
  40. LENOGRASTIM [Suspect]
     Active Substance: LENOGRASTIM
  41. RITUXIMAB [Suspect]
     Active Substance: RITUXIMAB
     Dates: start: 20240902
  42. RITUXIMAB [Suspect]
     Active Substance: RITUXIMAB
     Dates: start: 20240902
  43. RITUXIMAB [Suspect]
     Active Substance: RITUXIMAB
     Route: 042
     Dates: start: 20240902
  44. RITUXIMAB [Suspect]
     Active Substance: RITUXIMAB
     Route: 042
     Dates: start: 20240902
  45. RITUXIMAB [Suspect]
     Active Substance: RITUXIMAB
  46. RITUXIMAB [Suspect]
     Active Substance: RITUXIMAB
  47. RITUXIMAB [Suspect]
     Active Substance: RITUXIMAB
     Route: 042
  48. RITUXIMAB [Suspect]
     Active Substance: RITUXIMAB
     Route: 042
  49. RITUXIMAB [Suspect]
     Active Substance: RITUXIMAB
  50. RITUXIMAB [Suspect]
     Active Substance: RITUXIMAB
     Route: 042
  51. RITUXIMAB [Suspect]
     Active Substance: RITUXIMAB
  52. RITUXIMAB [Suspect]
     Active Substance: RITUXIMAB
     Route: 042
  53. TOCILIZUMAB [Suspect]
     Active Substance: TOCILIZUMAB
     Indication: Non-Hodgkin^s lymphoma
     Route: 042
     Dates: start: 20240807
  54. TOCILIZUMAB [Suspect]
     Active Substance: TOCILIZUMAB
     Dates: start: 20240807
  55. TOCILIZUMAB [Suspect]
     Active Substance: TOCILIZUMAB
     Dates: start: 20240807
  56. TOCILIZUMAB [Suspect]
     Active Substance: TOCILIZUMAB
     Route: 042
     Dates: start: 20240807
  57. TOCILIZUMAB [Suspect]
     Active Substance: TOCILIZUMAB
     Route: 042
  58. TOCILIZUMAB [Suspect]
     Active Substance: TOCILIZUMAB
  59. TOCILIZUMAB [Suspect]
     Active Substance: TOCILIZUMAB
  60. TOCILIZUMAB [Suspect]
     Active Substance: TOCILIZUMAB
     Route: 042
  61. CYTARABINE [Suspect]
     Active Substance: CYTARABINE
     Indication: Non-Hodgkin^s lymphoma
     Route: 037
     Dates: start: 20240726
  62. CYTARABINE [Suspect]
     Active Substance: CYTARABINE
     Dates: start: 20240726
  63. CYTARABINE [Suspect]
     Active Substance: CYTARABINE
     Dates: start: 20240726
  64. CYTARABINE [Suspect]
     Active Substance: CYTARABINE
     Route: 037
     Dates: start: 20240726
  65. CYTARABINE [Suspect]
     Active Substance: CYTARABINE
     Route: 037
     Dates: start: 20240902
  66. CYTARABINE [Suspect]
     Active Substance: CYTARABINE
     Dates: start: 20240902
  67. CYTARABINE [Suspect]
     Active Substance: CYTARABINE
     Dates: start: 20240902
  68. CYTARABINE [Suspect]
     Active Substance: CYTARABINE
     Route: 037
     Dates: start: 20240902
  69. CYTARABINE [Suspect]
     Active Substance: CYTARABINE
     Route: 037
  70. CYTARABINE [Suspect]
     Active Substance: CYTARABINE
     Route: 037
  71. CYTARABINE [Suspect]
     Active Substance: CYTARABINE
  72. CYTARABINE [Suspect]
     Active Substance: CYTARABINE
  73. HYDROCORTISONE [Suspect]
     Active Substance: HYDROCORTISONE
     Indication: Non-Hodgkin^s lymphoma
     Route: 037
     Dates: start: 20240726
  74. HYDROCORTISONE [Suspect]
     Active Substance: HYDROCORTISONE
     Dates: start: 20240726
  75. HYDROCORTISONE [Suspect]
     Active Substance: HYDROCORTISONE
     Dates: start: 20240726
  76. HYDROCORTISONE [Suspect]
     Active Substance: HYDROCORTISONE
     Route: 037
     Dates: start: 20240726
  77. HYDROCORTISONE [Suspect]
     Active Substance: HYDROCORTISONE
     Route: 037
     Dates: start: 20240902
  78. HYDROCORTISONE [Suspect]
     Active Substance: HYDROCORTISONE
     Dates: start: 20240902
  79. HYDROCORTISONE [Suspect]
     Active Substance: HYDROCORTISONE
     Dates: start: 20240902
  80. HYDROCORTISONE [Suspect]
     Active Substance: HYDROCORTISONE
     Route: 037
     Dates: start: 20240902
  81. HYDROCORTISONE [Suspect]
     Active Substance: HYDROCORTISONE
     Route: 037
  82. HYDROCORTISONE [Suspect]
     Active Substance: HYDROCORTISONE
     Route: 037
  83. HYDROCORTISONE [Suspect]
     Active Substance: HYDROCORTISONE
  84. HYDROCORTISONE [Suspect]
     Active Substance: HYDROCORTISONE
  85. OBINUTUZUMAB [Suspect]
     Active Substance: OBINUTUZUMAB
     Indication: Non-Hodgkin^s lymphoma
     Dates: start: 20240731
  86. OBINUTUZUMAB [Suspect]
     Active Substance: OBINUTUZUMAB
     Dates: start: 20240731
  87. OBINUTUZUMAB [Suspect]
     Active Substance: OBINUTUZUMAB
     Route: 042
     Dates: start: 20240731
  88. OBINUTUZUMAB [Suspect]
     Active Substance: OBINUTUZUMAB
     Route: 042
     Dates: start: 20240731
  89. OBINUTUZUMAB [Suspect]
     Active Substance: OBINUTUZUMAB
     Route: 042
     Dates: start: 20240801
  90. OBINUTUZUMAB [Suspect]
     Active Substance: OBINUTUZUMAB
     Route: 042
     Dates: start: 20240801
  91. OBINUTUZUMAB [Suspect]
     Active Substance: OBINUTUZUMAB
     Dates: start: 20240801
  92. OBINUTUZUMAB [Suspect]
     Active Substance: OBINUTUZUMAB
     Dates: start: 20240801
  93. OBINUTUZUMAB [Suspect]
     Active Substance: OBINUTUZUMAB
     Route: 042
  94. OBINUTUZUMAB [Suspect]
     Active Substance: OBINUTUZUMAB
  95. OBINUTUZUMAB [Suspect]
     Active Substance: OBINUTUZUMAB
  96. OBINUTUZUMAB [Suspect]
     Active Substance: OBINUTUZUMAB
     Route: 042
  97. OBINUTUZUMAB [Suspect]
     Active Substance: OBINUTUZUMAB
  98. OBINUTUZUMAB [Suspect]
     Active Substance: OBINUTUZUMAB
  99. OBINUTUZUMAB [Suspect]
     Active Substance: OBINUTUZUMAB
     Route: 042
  100. OBINUTUZUMAB [Suspect]
     Active Substance: OBINUTUZUMAB
     Route: 042
  101. COLUMVI [Suspect]
     Active Substance: GLOFITAMAB-GXBM
     Indication: Non-Hodgkin^s lymphoma
  102. COLUMVI [Suspect]
     Active Substance: GLOFITAMAB-GXBM
     Route: 042
  103. COLUMVI [Suspect]
     Active Substance: GLOFITAMAB-GXBM
     Route: 042
  104. COLUMVI [Suspect]
     Active Substance: GLOFITAMAB-GXBM
  105. COLUMVI [Suspect]
     Active Substance: GLOFITAMAB-GXBM
  106. COLUMVI [Suspect]
     Active Substance: GLOFITAMAB-GXBM
     Route: 042
  107. COLUMVI [Suspect]
     Active Substance: GLOFITAMAB-GXBM
  108. COLUMVI [Suspect]
     Active Substance: GLOFITAMAB-GXBM
     Route: 042
  109. COLUMVI [Suspect]
     Active Substance: GLOFITAMAB-GXBM
     Route: 042
  110. COLUMVI [Suspect]
     Active Substance: GLOFITAMAB-GXBM
     Route: 042
  111. COLUMVI [Suspect]
     Active Substance: GLOFITAMAB-GXBM
  112. COLUMVI [Suspect]
     Active Substance: GLOFITAMAB-GXBM
  113. MESNA [Suspect]
     Active Substance: MESNA
     Indication: Non-Hodgkin^s lymphoma
     Route: 042
     Dates: start: 20240802
  114. MESNA [Suspect]
     Active Substance: MESNA
     Dates: start: 20240802
  115. MESNA [Suspect]
     Active Substance: MESNA
     Dates: start: 20240802
  116. MESNA [Suspect]
     Active Substance: MESNA
     Route: 042
     Dates: start: 20240802
  117. MESNA [Suspect]
     Active Substance: MESNA
     Route: 042
  118. MESNA [Suspect]
     Active Substance: MESNA
  119. MESNA [Suspect]
     Active Substance: MESNA
  120. MESNA [Suspect]
     Active Substance: MESNA
     Route: 042
  121. MESNA [Suspect]
     Active Substance: MESNA
     Route: 042
  122. MESNA [Suspect]
     Active Substance: MESNA
     Route: 042
  123. MESNA [Suspect]
     Active Substance: MESNA
  124. MESNA [Suspect]
     Active Substance: MESNA
  125. MABTHERA [Suspect]
     Active Substance: RITUXIMAB
     Indication: Non-Hodgkin^s lymphoma
     Dates: start: 20240902
  126. MABTHERA [Suspect]
     Active Substance: RITUXIMAB
     Route: 042
     Dates: start: 20240902
  127. MABTHERA [Suspect]
     Active Substance: RITUXIMAB
     Route: 042
     Dates: start: 20240902
  128. MABTHERA [Suspect]
     Active Substance: RITUXIMAB
     Dates: start: 20240902
  129. MABTHERA [Suspect]
     Active Substance: RITUXIMAB
  130. MABTHERA [Suspect]
     Active Substance: RITUXIMAB
     Route: 042
  131. MABTHERA [Suspect]
     Active Substance: RITUXIMAB
  132. MABTHERA [Suspect]
     Active Substance: RITUXIMAB
     Route: 042
  133. MABTHERA [Suspect]
     Active Substance: RITUXIMAB
     Route: 042
  134. MABTHERA [Suspect]
     Active Substance: RITUXIMAB
     Route: 042
  135. MABTHERA [Suspect]
     Active Substance: RITUXIMAB
  136. MABTHERA [Suspect]
     Active Substance: RITUXIMAB
  137. CARBOPLATIN [Suspect]
     Active Substance: CARBOPLATIN
     Indication: Non-Hodgkin^s lymphoma
     Route: 042
     Dates: start: 20240802
  138. CARBOPLATIN [Suspect]
     Active Substance: CARBOPLATIN
     Dates: start: 20240802
  139. CARBOPLATIN [Suspect]
     Active Substance: CARBOPLATIN
     Dates: start: 20240802
  140. CARBOPLATIN [Suspect]
     Active Substance: CARBOPLATIN
     Route: 042
     Dates: start: 20240802
  141. CARBOPLATIN [Suspect]
     Active Substance: CARBOPLATIN
     Route: 042
  142. CARBOPLATIN [Suspect]
     Active Substance: CARBOPLATIN
  143. CARBOPLATIN [Suspect]
     Active Substance: CARBOPLATIN
  144. CARBOPLATIN [Suspect]
     Active Substance: CARBOPLATIN
     Route: 042
  145. ETOPOSIDE [Suspect]
     Active Substance: ETOPOSIDE
     Indication: Non-Hodgkin^s lymphoma
     Route: 042
     Dates: start: 20240802
  146. ETOPOSIDE [Suspect]
     Active Substance: ETOPOSIDE
     Dates: start: 20240802
  147. ETOPOSIDE [Suspect]
     Active Substance: ETOPOSIDE
     Dates: start: 20240802
  148. ETOPOSIDE [Suspect]
     Active Substance: ETOPOSIDE
     Route: 042
     Dates: start: 20240802
  149. ETOPOSIDE [Suspect]
     Active Substance: ETOPOSIDE
  150. ETOPOSIDE [Suspect]
     Active Substance: ETOPOSIDE
  151. ETOPOSIDE [Suspect]
     Active Substance: ETOPOSIDE
     Route: 042
  152. ETOPOSIDE [Suspect]
     Active Substance: ETOPOSIDE
     Route: 042
  153. ETOPOSIDE [Suspect]
     Active Substance: ETOPOSIDE
     Route: 065
  154. ETOPOSIDE [Suspect]
     Active Substance: ETOPOSIDE
  155. ETOPOSIDE [Suspect]
     Active Substance: ETOPOSIDE
  156. ETOPOSIDE [Suspect]
     Active Substance: ETOPOSIDE
     Route: 065
  157. HYDROMORPHONE [Suspect]
     Active Substance: HYDROMORPHONE
     Indication: Product used for unknown indication
     Dates: start: 20240808, end: 20240823
  158. HYDROMORPHONE [Suspect]
     Active Substance: HYDROMORPHONE
     Dates: start: 20240808, end: 20240823
  159. HYDROMORPHONE [Suspect]
     Active Substance: HYDROMORPHONE
     Route: 042
     Dates: start: 20240808, end: 20240823
  160. HYDROMORPHONE [Suspect]
     Active Substance: HYDROMORPHONE
     Route: 042
     Dates: start: 20240808, end: 20240823
  161. HYDROMORPHONE [Suspect]
     Active Substance: HYDROMORPHONE
     Dates: start: 20240913, end: 20240918
  162. HYDROMORPHONE [Suspect]
     Active Substance: HYDROMORPHONE
     Dates: start: 20240913, end: 20240918
  163. HYDROMORPHONE [Suspect]
     Active Substance: HYDROMORPHONE
     Route: 042
     Dates: start: 20240913, end: 20240918
  164. HYDROMORPHONE [Suspect]
     Active Substance: HYDROMORPHONE
     Route: 042
     Dates: start: 20240913, end: 20240918
  165. HYDROMORPHONE [Suspect]
     Active Substance: HYDROMORPHONE
     Dates: start: 20240918, end: 20240921
  166. HYDROMORPHONE [Suspect]
     Active Substance: HYDROMORPHONE
     Route: 042
     Dates: start: 20240918, end: 20240921
  167. HYDROMORPHONE [Suspect]
     Active Substance: HYDROMORPHONE
     Dates: start: 20240918, end: 20240921
  168. HYDROMORPHONE [Suspect]
     Active Substance: HYDROMORPHONE
     Route: 042
     Dates: start: 20240918, end: 20240921
  169. METHYLPREDNISOLONE [Concomitant]
     Active Substance: METHYLPREDNISOLONE
     Indication: Product used for unknown indication
     Dosage: 120 MG
     Dates: start: 20240828, end: 20240828
  170. METHYLPREDNISOLONE [Concomitant]
     Active Substance: METHYLPREDNISOLONE
     Dosage: 120 MG
     Route: 042
     Dates: start: 20240828, end: 20240828
  171. METHYLPREDNISOLONE [Concomitant]
     Active Substance: METHYLPREDNISOLONE
     Dosage: 120 MG
     Route: 042
     Dates: start: 20240828, end: 20240828
  172. METHYLPREDNISOLONE [Concomitant]
     Active Substance: METHYLPREDNISOLONE
     Dosage: 120 MG
     Dates: start: 20240828, end: 20240828
  173. ACETAMINOPHEN [Concomitant]
     Active Substance: ACETAMINOPHEN
     Indication: Headache
     Route: 042
  174. ACETAMINOPHEN [Concomitant]
     Active Substance: ACETAMINOPHEN
  175. ACETAMINOPHEN [Concomitant]
     Active Substance: ACETAMINOPHEN
  176. ACETAMINOPHEN [Concomitant]
     Active Substance: ACETAMINOPHEN
     Route: 042
  177. ACETAMINOPHEN [Concomitant]
     Active Substance: ACETAMINOPHEN
     Route: 065
  178. ACETAMINOPHEN [Concomitant]
     Active Substance: ACETAMINOPHEN
  179. ACETAMINOPHEN [Concomitant]
     Active Substance: ACETAMINOPHEN
  180. ACETAMINOPHEN [Concomitant]
     Active Substance: ACETAMINOPHEN
     Route: 065
  181. AMPHOTERICIN B [Concomitant]
     Active Substance: AMPHOTERICIN B
     Dosage: 100 MILLIGRAM, TID
     Route: 048
     Dates: start: 20240922
  182. AMPHOTERICIN B [Concomitant]
     Active Substance: AMPHOTERICIN B
     Dosage: 100 MILLIGRAM, TID
     Dates: start: 20240922
  183. AMPHOTERICIN B [Concomitant]
     Active Substance: AMPHOTERICIN B
     Dosage: 100 MILLIGRAM, TID
     Dates: start: 20240922
  184. AMPHOTERICIN B [Concomitant]
     Active Substance: AMPHOTERICIN B
     Dosage: 100 MILLIGRAM, TID
     Route: 048
     Dates: start: 20240922
  185. AMPHOTERICIN B [Concomitant]
     Active Substance: AMPHOTERICIN B
     Route: 065
  186. AMPHOTERICIN B [Concomitant]
     Active Substance: AMPHOTERICIN B
  187. AMPHOTERICIN B [Concomitant]
     Active Substance: AMPHOTERICIN B
  188. AMPHOTERICIN B [Concomitant]
     Active Substance: AMPHOTERICIN B
     Route: 065
  189. CLEMASTINE [Concomitant]
     Active Substance: CLEMASTINE
     Route: 042
     Dates: start: 20240828, end: 20240902
  190. CLEMASTINE [Concomitant]
     Active Substance: CLEMASTINE
     Dates: start: 20240828, end: 20240902
  191. CLEMASTINE [Concomitant]
     Active Substance: CLEMASTINE
     Dates: start: 20240828, end: 20240902
  192. CLEMASTINE [Concomitant]
     Active Substance: CLEMASTINE
     Route: 042
     Dates: start: 20240828, end: 20240902
  193. CLEMASTINE [Concomitant]
     Active Substance: CLEMASTINE
     Route: 065
     Dates: start: 20240828, end: 20240902
  194. CLEMASTINE [Concomitant]
     Active Substance: CLEMASTINE
     Dates: start: 20240828, end: 20240902
  195. CLEMASTINE [Concomitant]
     Active Substance: CLEMASTINE
     Dates: start: 20240828, end: 20240902
  196. CLEMASTINE [Concomitant]
     Active Substance: CLEMASTINE
     Route: 065
     Dates: start: 20240828, end: 20240902
  197. CAFFEINE [Concomitant]
     Active Substance: CAFFEINE
     Indication: Headache
     Dates: start: 20240727, end: 20240925
  198. CAFFEINE [Concomitant]
     Active Substance: CAFFEINE
     Route: 048
     Dates: start: 20240727, end: 20240925
  199. CAFFEINE [Concomitant]
     Active Substance: CAFFEINE
     Route: 048
     Dates: start: 20240727, end: 20240925
  200. CAFFEINE [Concomitant]
     Active Substance: CAFFEINE
     Dates: start: 20240727, end: 20240925
  201. Tranexamsaure eberth [Concomitant]
     Indication: Epistaxis
  202. Tranexamsaure eberth [Concomitant]
     Route: 045
  203. Tranexamsaure eberth [Concomitant]
     Route: 045
  204. Tranexamsaure eberth [Concomitant]
  205. HUMAN RED BLOOD CELL [Concomitant]
     Active Substance: HUMAN RED BLOOD CELL
     Indication: Anaemia
  206. HUMAN RED BLOOD CELL [Concomitant]
     Active Substance: HUMAN RED BLOOD CELL
     Indication: Platelet count decreased
     Route: 042
  207. HUMAN RED BLOOD CELL [Concomitant]
     Active Substance: HUMAN RED BLOOD CELL
     Route: 042
  208. HUMAN RED BLOOD CELL [Concomitant]
     Active Substance: HUMAN RED BLOOD CELL
  209. PLATELETS [Concomitant]
     Active Substance: HUMAN PLATELET, ALLOGENIC
     Indication: Platelet count decreased
  210. PLATELETS [Concomitant]
     Active Substance: HUMAN PLATELET, ALLOGENIC
     Indication: Anaemia
     Route: 042
  211. PLATELETS [Concomitant]
     Active Substance: HUMAN PLATELET, ALLOGENIC
     Route: 042
  212. PLATELETS [Concomitant]
     Active Substance: HUMAN PLATELET, ALLOGENIC
  213. MELATONIN [Concomitant]
     Active Substance: MELATONIN
     Dosage: 5 MILLIGRAM, QD
     Dates: start: 20240806, end: 20240913
  214. MELATONIN [Concomitant]
     Active Substance: MELATONIN
     Dosage: 5 MILLIGRAM, QD
     Route: 048
     Dates: start: 20240806, end: 20240913
  215. MELATONIN [Concomitant]
     Active Substance: MELATONIN
     Dosage: 5 MILLIGRAM, QD
     Route: 048
     Dates: start: 20240806, end: 20240913
  216. MELATONIN [Concomitant]
     Active Substance: MELATONIN
     Dosage: 5 MILLIGRAM, QD
     Dates: start: 20240806, end: 20240913
  217. LEVETIRACETAM [Concomitant]
     Active Substance: LEVETIRACETAM
     Indication: Encephalopathy
  218. LEVETIRACETAM [Concomitant]
     Active Substance: LEVETIRACETAM
  219. LEVETIRACETAM [Concomitant]
     Active Substance: LEVETIRACETAM
     Route: 042
  220. LEVETIRACETAM [Concomitant]
     Active Substance: LEVETIRACETAM
     Route: 042
  221. LEVETIRACETAM [Concomitant]
     Active Substance: LEVETIRACETAM
     Dates: start: 20240903, end: 20240922
  222. LEVETIRACETAM [Concomitant]
     Active Substance: LEVETIRACETAM
     Dates: start: 20240903, end: 20240922
  223. LEVETIRACETAM [Concomitant]
     Active Substance: LEVETIRACETAM
     Route: 042
     Dates: start: 20240903, end: 20240922
  224. LEVETIRACETAM [Concomitant]
     Active Substance: LEVETIRACETAM
     Route: 042
     Dates: start: 20240903, end: 20240922
  225. LEVETIRACETAM [Concomitant]
     Active Substance: LEVETIRACETAM
     Dates: start: 20240923, end: 20240923
  226. LEVETIRACETAM [Concomitant]
     Active Substance: LEVETIRACETAM
     Dates: start: 20240923, end: 20240923
  227. LEVETIRACETAM [Concomitant]
     Active Substance: LEVETIRACETAM
     Route: 042
     Dates: start: 20240923, end: 20240923
  228. LEVETIRACETAM [Concomitant]
     Active Substance: LEVETIRACETAM
     Route: 042
     Dates: start: 20240923, end: 20240923
  229. LEVETIRACETAM [Concomitant]
     Active Substance: LEVETIRACETAM
     Dates: start: 20240805, end: 20240901
  230. LEVETIRACETAM [Concomitant]
     Active Substance: LEVETIRACETAM
     Dates: start: 20240805, end: 20240901
  231. LEVETIRACETAM [Concomitant]
     Active Substance: LEVETIRACETAM
     Route: 042
     Dates: start: 20240805, end: 20240901
  232. LEVETIRACETAM [Concomitant]
     Active Substance: LEVETIRACETAM
     Route: 042
     Dates: start: 20240805, end: 20240901
  233. LEVETIRACETAM [Concomitant]
     Active Substance: LEVETIRACETAM
  234. LEVETIRACETAM [Concomitant]
     Active Substance: LEVETIRACETAM
     Route: 065
  235. LEVETIRACETAM [Concomitant]
     Active Substance: LEVETIRACETAM
  236. LEVETIRACETAM [Concomitant]
     Active Substance: LEVETIRACETAM
     Route: 065
  237. LEVETIRACETAM [Concomitant]
     Active Substance: LEVETIRACETAM
     Indication: Encephalopathy
     Dosage: 1500 MILLIGRAM, QD
     Dates: start: 20240924
  238. LEVETIRACETAM [Concomitant]
     Active Substance: LEVETIRACETAM
     Dosage: 1500 MILLIGRAM, QD
     Dates: start: 20240924
  239. LEVETIRACETAM [Concomitant]
     Active Substance: LEVETIRACETAM
     Dosage: 1500 MILLIGRAM, QD
     Route: 048
     Dates: start: 20240924
  240. LEVETIRACETAM [Concomitant]
     Active Substance: LEVETIRACETAM
     Dosage: 1500 MILLIGRAM, QD
     Route: 048
     Dates: start: 20240924
  241. LEVETIRACETAM [Concomitant]
     Active Substance: LEVETIRACETAM
     Dates: start: 20240902, end: 20240902
  242. LEVETIRACETAM [Concomitant]
     Active Substance: LEVETIRACETAM
     Dates: start: 20240902, end: 20240902
  243. LEVETIRACETAM [Concomitant]
     Active Substance: LEVETIRACETAM
     Route: 042
     Dates: start: 20240902, end: 20240902
  244. LEVETIRACETAM [Concomitant]
     Active Substance: LEVETIRACETAM
     Route: 042
     Dates: start: 20240902, end: 20240902
  245. LEVETIRACETAM [Concomitant]
     Active Substance: LEVETIRACETAM
     Dates: start: 20240903, end: 20240922
  246. LEVETIRACETAM [Concomitant]
     Active Substance: LEVETIRACETAM
     Dates: start: 20240903, end: 20240922
  247. LEVETIRACETAM [Concomitant]
     Active Substance: LEVETIRACETAM
     Route: 042
     Dates: start: 20240903, end: 20240922
  248. LEVETIRACETAM [Concomitant]
     Active Substance: LEVETIRACETAM
     Route: 042
     Dates: start: 20240903, end: 20240922
  249. LEVETIRACETAM [Concomitant]
     Active Substance: LEVETIRACETAM
     Dosage: 1500 MILLIGRAM, QD
     Dates: start: 20240923, end: 20240923
  250. LEVETIRACETAM [Concomitant]
     Active Substance: LEVETIRACETAM
     Dosage: 1500 MILLIGRAM, QD
     Dates: start: 20240923, end: 20240923
  251. LEVETIRACETAM [Concomitant]
     Active Substance: LEVETIRACETAM
     Dosage: 1500 MILLIGRAM, QD
     Route: 042
     Dates: start: 20240923, end: 20240923
  252. LEVETIRACETAM [Concomitant]
     Active Substance: LEVETIRACETAM
     Dosage: 1500 MILLIGRAM, QD
     Route: 042
     Dates: start: 20240923, end: 20240923
  253. LEVETIRACETAM [Concomitant]
     Active Substance: LEVETIRACETAM
     Dates: start: 20240805, end: 20240901
  254. LEVETIRACETAM [Concomitant]
     Active Substance: LEVETIRACETAM
     Route: 042
     Dates: start: 20240805, end: 20240901
  255. LEVETIRACETAM [Concomitant]
     Active Substance: LEVETIRACETAM
     Dates: start: 20240805, end: 20240901
  256. LEVETIRACETAM [Concomitant]
     Active Substance: LEVETIRACETAM
     Route: 042
     Dates: start: 20240805, end: 20240901
  257. TRANEXAMIC ACID [Concomitant]
     Active Substance: TRANEXAMIC ACID
     Indication: Epistaxis
     Route: 045
  258. TRANEXAMIC ACID [Concomitant]
     Active Substance: TRANEXAMIC ACID
  259. TRANEXAMIC ACID [Concomitant]
     Active Substance: TRANEXAMIC ACID
  260. TRANEXAMIC ACID [Concomitant]
     Active Substance: TRANEXAMIC ACID
     Route: 045
  261. TRANEXAMIC ACID [Concomitant]
     Active Substance: TRANEXAMIC ACID
     Route: 045
  262. TRANEXAMIC ACID [Concomitant]
     Active Substance: TRANEXAMIC ACID
  263. TRANEXAMIC ACID [Concomitant]
     Active Substance: TRANEXAMIC ACID
  264. TRANEXAMIC ACID [Concomitant]
     Active Substance: TRANEXAMIC ACID
     Route: 045
  265. ONDANSETRON [Concomitant]
     Active Substance: ONDANSETRON
     Indication: Prophylaxis of nausea and vomiting
     Dosage: 8 MILLIGRAM, TID
     Dates: start: 20240902, end: 20240902
  266. ONDANSETRON [Concomitant]
     Active Substance: ONDANSETRON
     Dosage: 8 MILLIGRAM, TID
     Dates: start: 20240902, end: 20240902
  267. ONDANSETRON [Concomitant]
     Active Substance: ONDANSETRON
     Dosage: 8 MILLIGRAM, TID
     Route: 042
     Dates: start: 20240902, end: 20240902
  268. ONDANSETRON [Concomitant]
     Active Substance: ONDANSETRON
     Dosage: 8 MILLIGRAM, TID
     Route: 042
     Dates: start: 20240902, end: 20240902
  269. ONDANSETRON [Concomitant]
     Active Substance: ONDANSETRON
     Dosage: 8 MILLIGRAM, BID
     Route: 042
     Dates: start: 20240903, end: 20240906
  270. ONDANSETRON [Concomitant]
     Active Substance: ONDANSETRON
     Dosage: 8 MILLIGRAM, BID
     Route: 042
     Dates: start: 20240903, end: 20240906
  271. ONDANSETRON [Concomitant]
     Active Substance: ONDANSETRON
     Dosage: 8 MILLIGRAM, BID
     Dates: start: 20240903, end: 20240906
  272. ONDANSETRON [Concomitant]
     Active Substance: ONDANSETRON
     Dosage: 8 MILLIGRAM, BID
     Dates: start: 20240903, end: 20240906
  273. ONDANSETRON [Concomitant]
     Active Substance: ONDANSETRON
     Dosage: 8 MILLIGRAM, QD
     Route: 042
     Dates: start: 20240907, end: 20240907
  274. ONDANSETRON [Concomitant]
     Active Substance: ONDANSETRON
     Dosage: 8 MILLIGRAM, QD
     Route: 042
     Dates: start: 20240907, end: 20240907
  275. ONDANSETRON [Concomitant]
     Active Substance: ONDANSETRON
     Dosage: 8 MILLIGRAM, QD
     Dates: start: 20240907, end: 20240907
  276. ONDANSETRON [Concomitant]
     Active Substance: ONDANSETRON
     Dosage: 8 MILLIGRAM, QD
     Dates: start: 20240907, end: 20240907
  277. ONDANSETRON [Concomitant]
     Active Substance: ONDANSETRON
     Dates: start: 20240903, end: 20240906
  278. ONDANSETRON [Concomitant]
     Active Substance: ONDANSETRON
     Dates: start: 20240903, end: 20240906
  279. ONDANSETRON [Concomitant]
     Active Substance: ONDANSETRON
     Route: 042
     Dates: start: 20240903, end: 20240906
  280. ONDANSETRON [Concomitant]
     Active Substance: ONDANSETRON
     Route: 042
     Dates: start: 20240903, end: 20240906
  281. SULFAMETHOXAZOLE\TRIMETHOPRIM [Concomitant]
     Active Substance: SULFAMETHOXAZOLE\TRIMETHOPRIM
     Dosage: 320 MILLIGRAM, BIW
     Route: 048
     Dates: start: 20240726, end: 20240913
  282. SULFAMETHOXAZOLE\TRIMETHOPRIM [Concomitant]
     Active Substance: SULFAMETHOXAZOLE\TRIMETHOPRIM
     Dosage: 320 MILLIGRAM, BIW
     Dates: start: 20240726, end: 20240913
  283. SULFAMETHOXAZOLE\TRIMETHOPRIM [Concomitant]
     Active Substance: SULFAMETHOXAZOLE\TRIMETHOPRIM
     Dosage: 320 MILLIGRAM, BIW
     Dates: start: 20240726, end: 20240913
  284. SULFAMETHOXAZOLE\TRIMETHOPRIM [Concomitant]
     Active Substance: SULFAMETHOXAZOLE\TRIMETHOPRIM
     Dosage: 320 MILLIGRAM, BIW
     Route: 048
     Dates: start: 20240726, end: 20240913
  285. SULFAMETHOXAZOLE\TRIMETHOPRIM [Concomitant]
     Active Substance: SULFAMETHOXAZOLE\TRIMETHOPRIM
     Dosage: 320 MILLIGRAM, BIW
     Route: 048
     Dates: start: 20240924
  286. SULFAMETHOXAZOLE\TRIMETHOPRIM [Concomitant]
     Active Substance: SULFAMETHOXAZOLE\TRIMETHOPRIM
     Dosage: 320 MILLIGRAM, BIW
     Dates: start: 20240924
  287. SULFAMETHOXAZOLE\TRIMETHOPRIM [Concomitant]
     Active Substance: SULFAMETHOXAZOLE\TRIMETHOPRIM
     Dosage: 320 MILLIGRAM, BIW
     Dates: start: 20240924
  288. SULFAMETHOXAZOLE\TRIMETHOPRIM [Concomitant]
     Active Substance: SULFAMETHOXAZOLE\TRIMETHOPRIM
     Dosage: 320 MILLIGRAM, BIW
     Route: 048
     Dates: start: 20240924
  289. PANTOPRAZOLE [Concomitant]
     Active Substance: PANTOPRAZOLE
     Dosage: 40 MILLIGRAM, QD
     Dates: start: 20240908, end: 20240915
  290. PANTOPRAZOLE [Concomitant]
     Active Substance: PANTOPRAZOLE
     Dosage: 40 MILLIGRAM, QD
     Route: 042
     Dates: start: 20240908, end: 20240915
  291. PANTOPRAZOLE [Concomitant]
     Active Substance: PANTOPRAZOLE
     Dosage: 40 MILLIGRAM, QD
     Route: 042
     Dates: start: 20240908, end: 20240915
  292. PANTOPRAZOLE [Concomitant]
     Active Substance: PANTOPRAZOLE
     Dosage: 40 MILLIGRAM, QD
     Dates: start: 20240908, end: 20240915
  293. PANTOPRAZOLE [Concomitant]
     Active Substance: PANTOPRAZOLE
     Dosage: 40 MILLIGRAM, QD
     Dates: start: 20240917, end: 20240923
  294. PANTOPRAZOLE [Concomitant]
     Active Substance: PANTOPRAZOLE
     Dosage: 40 MILLIGRAM, QD
     Route: 042
     Dates: start: 20240917, end: 20240923
  295. PANTOPRAZOLE [Concomitant]
     Active Substance: PANTOPRAZOLE
     Dosage: 40 MILLIGRAM, QD
     Dates: start: 20240917, end: 20240923
  296. PANTOPRAZOLE [Concomitant]
     Active Substance: PANTOPRAZOLE
     Dosage: 40 MILLIGRAM, QD
     Route: 042
     Dates: start: 20240917, end: 20240923
  297. PANTOPRAZOLE [Concomitant]
     Active Substance: PANTOPRAZOLE
     Dosage: 40 MILLIGRAM, QD
     Route: 048
     Dates: start: 20240728, end: 20240907
  298. PANTOPRAZOLE [Concomitant]
     Active Substance: PANTOPRAZOLE
     Dosage: 40 MILLIGRAM, QD
     Route: 048
     Dates: start: 20240728, end: 20240907
  299. PANTOPRAZOLE [Concomitant]
     Active Substance: PANTOPRAZOLE
     Dosage: 40 MILLIGRAM, QD
     Dates: start: 20240728, end: 20240907
  300. PANTOPRAZOLE [Concomitant]
     Active Substance: PANTOPRAZOLE
     Dosage: 40 MILLIGRAM, QD
     Dates: start: 20240728, end: 20240907
  301. PANTOPRAZOLE [Concomitant]
     Active Substance: PANTOPRAZOLE
     Dosage: 40 MILLIGRAM, QD
     Route: 048
     Dates: start: 20240728, end: 20240907
  302. PANTOPRAZOLE [Concomitant]
     Active Substance: PANTOPRAZOLE
     Dosage: 40 MILLIGRAM, QD
     Dates: start: 20240728, end: 20240907
  303. PANTOPRAZOLE [Concomitant]
     Active Substance: PANTOPRAZOLE
     Dosage: 40 MILLIGRAM, QD
     Dates: start: 20240728, end: 20240907
  304. PANTOPRAZOLE [Concomitant]
     Active Substance: PANTOPRAZOLE
     Dosage: 40 MILLIGRAM, QD
     Route: 048
     Dates: start: 20240728, end: 20240907
  305. PANTOPRAZOLE [Concomitant]
     Active Substance: PANTOPRAZOLE
     Dosage: 40 MILLIGRAM, QD
     Route: 042
     Dates: start: 20240908, end: 20240915
  306. PANTOPRAZOLE [Concomitant]
     Active Substance: PANTOPRAZOLE
     Dosage: 40 MILLIGRAM, QD
     Dates: start: 20240908, end: 20240915
  307. PANTOPRAZOLE [Concomitant]
     Active Substance: PANTOPRAZOLE
     Dosage: 40 MILLIGRAM, QD
     Dates: start: 20240908, end: 20240915
  308. PANTOPRAZOLE [Concomitant]
     Active Substance: PANTOPRAZOLE
     Dosage: 40 MILLIGRAM, QD
     Route: 042
     Dates: start: 20240908, end: 20240915
  309. PANTOPRAZOLE [Concomitant]
     Active Substance: PANTOPRAZOLE
     Dosage: 40 MILLIGRAM, QD
     Route: 042
     Dates: start: 20240917, end: 20240923
  310. PANTOPRAZOLE [Concomitant]
     Active Substance: PANTOPRAZOLE
     Dosage: 40 MILLIGRAM, QD
     Route: 042
     Dates: start: 20240917, end: 20240923
  311. PANTOPRAZOLE [Concomitant]
     Active Substance: PANTOPRAZOLE
     Dosage: 40 MILLIGRAM, QD
     Dates: start: 20240917, end: 20240923
  312. PANTOPRAZOLE [Concomitant]
     Active Substance: PANTOPRAZOLE
     Dosage: 40 MILLIGRAM, QD
     Dates: start: 20240917, end: 20240923
  313. CAFFEINE [Concomitant]
     Active Substance: CAFFEINE
     Indication: Headache
     Dates: start: 20240727, end: 20240925
  314. CAFFEINE [Concomitant]
     Active Substance: CAFFEINE
     Dates: start: 20240727, end: 20240925
  315. CAFFEINE [Concomitant]
     Active Substance: CAFFEINE
     Route: 048
     Dates: start: 20240727, end: 20240925
  316. CAFFEINE [Concomitant]
     Active Substance: CAFFEINE
     Route: 048
     Dates: start: 20240727, end: 20240925
  317. CAFFEINE [Concomitant]
     Active Substance: CAFFEINE
     Dates: start: 20240727, end: 20240925
  318. CAFFEINE [Concomitant]
     Active Substance: CAFFEINE
     Dates: start: 20240727, end: 20240925
  319. CAFFEINE [Concomitant]
     Active Substance: CAFFEINE
     Route: 065
     Dates: start: 20240727, end: 20240925
  320. CAFFEINE [Concomitant]
     Active Substance: CAFFEINE
     Route: 065
     Dates: start: 20240727, end: 20240925
  321. DEXAMETHASONE [Concomitant]
     Active Substance: DEXAMETHASONE
     Indication: Neoplasm malignant
  322. DEXAMETHASONE [Concomitant]
     Active Substance: DEXAMETHASONE
     Route: 065
  323. DEXAMETHASONE [Concomitant]
     Active Substance: DEXAMETHASONE
     Route: 065
  324. DEXAMETHASONE [Concomitant]
     Active Substance: DEXAMETHASONE
  325. DIMENHYDRINATE [Concomitant]
     Active Substance: DIMENHYDRINATE
     Indication: Prophylaxis of nausea and vomiting
     Dates: start: 20240906, end: 20240906
  326. DIMENHYDRINATE [Concomitant]
     Active Substance: DIMENHYDRINATE
     Route: 048
     Dates: start: 20240906, end: 20240906
  327. DIMENHYDRINATE [Concomitant]
     Active Substance: DIMENHYDRINATE
     Route: 048
     Dates: start: 20240906, end: 20240906
  328. DIMENHYDRINATE [Concomitant]
     Active Substance: DIMENHYDRINATE
     Dates: start: 20240906, end: 20240906
  329. DIMENHYDRINATE [Concomitant]
     Active Substance: DIMENHYDRINATE
     Indication: Prophylaxis of nausea and vomiting
     Dates: start: 20240906, end: 20240906
  330. DIMENHYDRINATE [Concomitant]
     Active Substance: DIMENHYDRINATE
     Route: 042
     Dates: start: 20240906, end: 20240906
  331. DIMENHYDRINATE [Concomitant]
     Active Substance: DIMENHYDRINATE
     Route: 042
     Dates: start: 20240906, end: 20240906
  332. DIMENHYDRINATE [Concomitant]
     Active Substance: DIMENHYDRINATE
     Dates: start: 20240906, end: 20240906
  333. MEROPENEM [Concomitant]
     Active Substance: MEROPENEM
     Indication: Febrile neutropenia
     Dosage: 2 GRAM, TID
     Dates: start: 20240815, end: 20240901
  334. MEROPENEM [Concomitant]
     Active Substance: MEROPENEM
     Dosage: 2 GRAM, TID
     Dates: start: 20240815, end: 20240901
  335. MEROPENEM [Concomitant]
     Active Substance: MEROPENEM
     Dosage: 2 GRAM, TID
     Route: 042
     Dates: start: 20240815, end: 20240901
  336. MEROPENEM [Concomitant]
     Active Substance: MEROPENEM
     Dosage: 2 GRAM, TID
     Route: 042
     Dates: start: 20240815, end: 20240901
  337. MEROPENEM [Concomitant]
     Active Substance: MEROPENEM
     Dosage: 2 GRAM, QD
     Dates: start: 20240902, end: 20240902
  338. MEROPENEM [Concomitant]
     Active Substance: MEROPENEM
     Dosage: 2 GRAM, QD
     Dates: start: 20240902, end: 20240902
  339. MEROPENEM [Concomitant]
     Active Substance: MEROPENEM
     Dosage: 2 GRAM, QD
     Route: 042
     Dates: start: 20240902, end: 20240902
  340. MEROPENEM [Concomitant]
     Active Substance: MEROPENEM
     Dosage: 2 GRAM, QD
     Route: 042
     Dates: start: 20240902, end: 20240902
  341. TEICOPLANIN [Concomitant]
     Active Substance: TEICOPLANIN
     Indication: Cytokine release syndrome
     Dates: start: 20240830, end: 20240830
  342. TEICOPLANIN [Concomitant]
     Active Substance: TEICOPLANIN
     Dates: start: 20240830, end: 20240830
  343. TEICOPLANIN [Concomitant]
     Active Substance: TEICOPLANIN
     Route: 065
     Dates: start: 20240830, end: 20240830
  344. TEICOPLANIN [Concomitant]
     Active Substance: TEICOPLANIN
     Route: 065
     Dates: start: 20240830, end: 20240830
  345. TEICOPLANIN [Concomitant]
     Active Substance: TEICOPLANIN
     Dosage: 400 MILLIGRAM, QD
     Dates: start: 20240831, end: 20240902
  346. TEICOPLANIN [Concomitant]
     Active Substance: TEICOPLANIN
     Dosage: 400 MILLIGRAM, QD
     Dates: start: 20240831, end: 20240902
  347. TEICOPLANIN [Concomitant]
     Active Substance: TEICOPLANIN
     Dosage: 400 MILLIGRAM, QD
     Route: 065
     Dates: start: 20240831, end: 20240902
  348. TEICOPLANIN [Concomitant]
     Active Substance: TEICOPLANIN
     Dosage: 400 MILLIGRAM, QD
     Route: 065
     Dates: start: 20240831, end: 20240902
  349. NALOXONE HYDROCHLORIDE [Concomitant]
     Active Substance: NALOXONE HYDROCHLORIDE
     Dosage: 0.34 MILLIGRAM, QD
     Route: 042
     Dates: start: 20240808, end: 20240820
  350. NALOXONE HYDROCHLORIDE [Concomitant]
     Active Substance: NALOXONE HYDROCHLORIDE
     Dosage: 0.34 MILLIGRAM, QD
     Dates: start: 20240808, end: 20240820
  351. NALOXONE HYDROCHLORIDE [Concomitant]
     Active Substance: NALOXONE HYDROCHLORIDE
     Dosage: 0.34 MILLIGRAM, QD
     Dates: start: 20240808, end: 20240820
  352. NALOXONE HYDROCHLORIDE [Concomitant]
     Active Substance: NALOXONE HYDROCHLORIDE
     Dosage: 0.34 MILLIGRAM, QD
     Route: 042
     Dates: start: 20240808, end: 20240820
  353. NALOXONE HYDROCHLORIDE [Concomitant]
     Active Substance: NALOXONE HYDROCHLORIDE
     Dosage: 0.17 MILLIGRAM, QD
     Route: 042
     Dates: start: 20240820, end: 20240821
  354. NALOXONE HYDROCHLORIDE [Concomitant]
     Active Substance: NALOXONE HYDROCHLORIDE
     Dosage: 0.17 MILLIGRAM, QD
     Route: 042
     Dates: start: 20240820, end: 20240821
  355. NALOXONE HYDROCHLORIDE [Concomitant]
     Active Substance: NALOXONE HYDROCHLORIDE
     Dosage: 0.17 MILLIGRAM, QD
     Dates: start: 20240820, end: 20240821
  356. NALOXONE HYDROCHLORIDE [Concomitant]
     Active Substance: NALOXONE HYDROCHLORIDE
     Dosage: 0.17 MILLIGRAM, QD
     Dates: start: 20240820, end: 20240821
  357. NALOXONE HYDROCHLORIDE [Concomitant]
     Active Substance: NALOXONE HYDROCHLORIDE
     Dosage: 0.34 MILLIGRAM, QD
     Route: 042
     Dates: start: 20240808, end: 20240820
  358. NALOXONE HYDROCHLORIDE [Concomitant]
     Active Substance: NALOXONE HYDROCHLORIDE
     Dosage: 0.34 MILLIGRAM, QD
     Route: 042
     Dates: start: 20240808, end: 20240820
  359. NALOXONE HYDROCHLORIDE [Concomitant]
     Active Substance: NALOXONE HYDROCHLORIDE
     Dosage: 0.34 MILLIGRAM, QD
     Dates: start: 20240808, end: 20240820
  360. NALOXONE HYDROCHLORIDE [Concomitant]
     Active Substance: NALOXONE HYDROCHLORIDE
     Dosage: 0.34 MILLIGRAM, QD
     Dates: start: 20240808, end: 20240820
  361. NALOXONE HYDROCHLORIDE [Concomitant]
     Active Substance: NALOXONE HYDROCHLORIDE
     Dosage: 0.17 MILLIGRAM, QD
     Route: 042
     Dates: start: 20240820, end: 20240821
  362. NALOXONE HYDROCHLORIDE [Concomitant]
     Active Substance: NALOXONE HYDROCHLORIDE
     Dosage: 0.17 MILLIGRAM, QD
     Dates: start: 20240820, end: 20240821
  363. NALOXONE HYDROCHLORIDE [Concomitant]
     Active Substance: NALOXONE HYDROCHLORIDE
     Dosage: 0.17 MILLIGRAM, QD
     Dates: start: 20240820, end: 20240821
  364. NALOXONE HYDROCHLORIDE [Concomitant]
     Active Substance: NALOXONE HYDROCHLORIDE
     Dosage: 0.17 MILLIGRAM, QD
     Route: 042
     Dates: start: 20240820, end: 20240821
  365. FILGRASTIM [Concomitant]
     Active Substance: FILGRASTIM
     Indication: Neutropenia
     Dosage: 300 MICROGRAM, QD
     Dates: start: 20240806, end: 20240806
  366. FILGRASTIM [Concomitant]
     Active Substance: FILGRASTIM
     Dosage: 300 MICROGRAM, QD
     Dates: start: 20240806, end: 20240806
  367. FILGRASTIM [Concomitant]
     Active Substance: FILGRASTIM
     Dosage: 300 MICROGRAM, QD
     Route: 058
     Dates: start: 20240806, end: 20240806
  368. FILGRASTIM [Concomitant]
     Active Substance: FILGRASTIM
     Dosage: 300 MICROGRAM, QD
     Route: 058
     Dates: start: 20240806, end: 20240806
  369. FILGRASTIM [Concomitant]
     Active Substance: FILGRASTIM
     Dosage: 300 MICROGRAM, QD
     Route: 058
     Dates: start: 20240808, end: 20240812
  370. FILGRASTIM [Concomitant]
     Active Substance: FILGRASTIM
     Dosage: 300 MICROGRAM, QD
     Route: 058
     Dates: start: 20240808, end: 20240812
  371. FILGRASTIM [Concomitant]
     Active Substance: FILGRASTIM
     Dosage: 300 MICROGRAM, QD
     Dates: start: 20240808, end: 20240812
  372. FILGRASTIM [Concomitant]
     Active Substance: FILGRASTIM
     Dosage: 300 MICROGRAM, QD
     Dates: start: 20240808, end: 20240812
  373. FILGRASTIM [Concomitant]
     Active Substance: FILGRASTIM
     Dosage: 300 MICROGRAM, QD
     Route: 042
     Dates: start: 20240813, end: 20240823
  374. FILGRASTIM [Concomitant]
     Active Substance: FILGRASTIM
     Dosage: 300 MICROGRAM, QD
     Dates: start: 20240813, end: 20240823
  375. FILGRASTIM [Concomitant]
     Active Substance: FILGRASTIM
     Dosage: 300 MICROGRAM, QD
     Dates: start: 20240813, end: 20240823
  376. FILGRASTIM [Concomitant]
     Active Substance: FILGRASTIM
     Dosage: 300 MICROGRAM, QD
     Route: 042
     Dates: start: 20240813, end: 20240823
  377. FILGRASTIM [Concomitant]
     Active Substance: FILGRASTIM
     Dosage: 300 MICROGRAM, QD
     Route: 042
     Dates: start: 20240825, end: 20240826
  378. FILGRASTIM [Concomitant]
     Active Substance: FILGRASTIM
     Dosage: 300 MICROGRAM, QD
     Dates: start: 20240825, end: 20240826
  379. FILGRASTIM [Concomitant]
     Active Substance: FILGRASTIM
     Dosage: 300 MICROGRAM, QD
     Dates: start: 20240825, end: 20240826
  380. FILGRASTIM [Concomitant]
     Active Substance: FILGRASTIM
     Dosage: 300 MICROGRAM, QD
     Route: 042
     Dates: start: 20240825, end: 20240826
  381. FILGRASTIM [Concomitant]
     Active Substance: FILGRASTIM
     Dosage: 350 MICROGRAM, QD
     Route: 042
     Dates: start: 20240912, end: 20240927
  382. FILGRASTIM [Concomitant]
     Active Substance: FILGRASTIM
     Dosage: 350 MICROGRAM, QD
     Route: 042
     Dates: start: 20240912, end: 20240927
  383. FILGRASTIM [Concomitant]
     Active Substance: FILGRASTIM
     Dosage: 350 MICROGRAM, QD
     Dates: start: 20240912, end: 20240927
  384. FILGRASTIM [Concomitant]
     Active Substance: FILGRASTIM
     Dosage: 350 MICROGRAM, QD
     Dates: start: 20240912, end: 20240927
  385. FILGRASTIM [Concomitant]
     Active Substance: FILGRASTIM
     Dosage: 600 MICROGRAM, QD
     Route: 042
     Dates: start: 20240928
  386. FILGRASTIM [Concomitant]
     Active Substance: FILGRASTIM
     Dosage: 600 MICROGRAM, QD
     Dates: start: 20240928
  387. FILGRASTIM [Concomitant]
     Active Substance: FILGRASTIM
     Dosage: 600 MICROGRAM, QD
     Dates: start: 20240928
  388. FILGRASTIM [Concomitant]
     Active Substance: FILGRASTIM
     Dosage: 600 MICROGRAM, QD
     Route: 042
     Dates: start: 20240928
  389. FILGRASTIM [Concomitant]
     Active Substance: FILGRASTIM
     Indication: Neutropenia
     Dosage: 300 MICROGRAM, QD
     Dates: start: 20240813, end: 20240823
  390. FILGRASTIM [Concomitant]
     Active Substance: FILGRASTIM
     Dosage: 300 MICROGRAM, QD
     Dates: start: 20240813, end: 20240823
  391. FILGRASTIM [Concomitant]
     Active Substance: FILGRASTIM
     Dosage: 300 MICROGRAM, QD
     Route: 042
     Dates: start: 20240813, end: 20240823
  392. FILGRASTIM [Concomitant]
     Active Substance: FILGRASTIM
     Dosage: 300 MICROGRAM, QD
     Route: 042
     Dates: start: 20240813, end: 20240823
  393. FILGRASTIM [Concomitant]
     Active Substance: FILGRASTIM
     Dosage: 300 MICROGRAM, QD
     Route: 042
     Dates: start: 20240825, end: 20240826
  394. FILGRASTIM [Concomitant]
     Active Substance: FILGRASTIM
     Dosage: 300 MICROGRAM, QD
     Route: 042
     Dates: start: 20240825, end: 20240826
  395. FILGRASTIM [Concomitant]
     Active Substance: FILGRASTIM
     Dosage: 300 MICROGRAM, QD
     Dates: start: 20240825, end: 20240826
  396. FILGRASTIM [Concomitant]
     Active Substance: FILGRASTIM
     Dosage: 300 MICROGRAM, QD
     Dates: start: 20240825, end: 20240826
  397. FILGRASTIM [Concomitant]
     Active Substance: FILGRASTIM
     Dosage: 300 MICROGRAM, QD
     Route: 042
     Dates: start: 20240912, end: 20240927
  398. FILGRASTIM [Concomitant]
     Active Substance: FILGRASTIM
     Dosage: 300 MICROGRAM, QD
     Route: 042
     Dates: start: 20240912, end: 20240927
  399. FILGRASTIM [Concomitant]
     Active Substance: FILGRASTIM
     Dosage: 300 MICROGRAM, QD
     Dates: start: 20240912, end: 20240927
  400. FILGRASTIM [Concomitant]
     Active Substance: FILGRASTIM
     Dosage: 300 MICROGRAM, QD
     Dates: start: 20240912, end: 20240927
  401. FILGRASTIM [Concomitant]
     Active Substance: FILGRASTIM
     Dosage: 600 MICROGRAM, QD
     Dates: start: 20240928
  402. FILGRASTIM [Concomitant]
     Active Substance: FILGRASTIM
     Dosage: 600 MICROGRAM, QD
     Dates: start: 20240928
  403. FILGRASTIM [Concomitant]
     Active Substance: FILGRASTIM
     Dosage: 600 MICROGRAM, QD
     Route: 042
     Dates: start: 20240928
  404. FILGRASTIM [Concomitant]
     Active Substance: FILGRASTIM
     Dosage: 600 MICROGRAM, QD
     Route: 042
     Dates: start: 20240928
  405. TRAMADOL [Concomitant]
     Active Substance: TRAMADOL
     Indication: Pain
     Dates: start: 20240829, end: 20240829
  406. TRAMADOL [Concomitant]
     Active Substance: TRAMADOL
     Dates: start: 20240829, end: 20240829
  407. TRAMADOL [Concomitant]
     Active Substance: TRAMADOL
     Route: 048
     Dates: start: 20240829, end: 20240829
  408. TRAMADOL [Concomitant]
     Active Substance: TRAMADOL
     Route: 048
     Dates: start: 20240829, end: 20240829
  409. TRAMADOL [Concomitant]
     Active Substance: TRAMADOL
     Dates: start: 20240830, end: 20241001
  410. TRAMADOL [Concomitant]
     Active Substance: TRAMADOL
     Dates: start: 20240830, end: 20241001
  411. TRAMADOL [Concomitant]
     Active Substance: TRAMADOL
     Route: 048
     Dates: start: 20240830, end: 20241001
  412. TRAMADOL [Concomitant]
     Active Substance: TRAMADOL
     Route: 048
     Dates: start: 20240830, end: 20241001
  413. TRAMADOL [Concomitant]
     Active Substance: TRAMADOL
     Dates: start: 20240930, end: 20241001
  414. TRAMADOL [Concomitant]
     Active Substance: TRAMADOL
     Route: 048
     Dates: start: 20240930, end: 20241001
  415. TRAMADOL [Concomitant]
     Active Substance: TRAMADOL
     Dates: start: 20240930, end: 20241001
  416. TRAMADOL [Concomitant]
     Active Substance: TRAMADOL
     Route: 048
     Dates: start: 20240930, end: 20241001
  417. TRAMADOL [Concomitant]
     Active Substance: TRAMADOL
     Indication: Pain
     Dates: start: 20240911, end: 20240913
  418. TRAMADOL [Concomitant]
     Active Substance: TRAMADOL
     Route: 042
     Dates: start: 20240911, end: 20240913
  419. TRAMADOL [Concomitant]
     Active Substance: TRAMADOL
     Route: 042
     Dates: start: 20240911, end: 20240913
  420. TRAMADOL [Concomitant]
     Active Substance: TRAMADOL
     Dates: start: 20240911, end: 20240913
  421. TRAMADOL [Concomitant]
     Active Substance: TRAMADOL
     Indication: Pain
     Route: 048
     Dates: start: 20240829, end: 20240829
  422. TRAMADOL [Concomitant]
     Active Substance: TRAMADOL
     Indication: Headache
     Dates: start: 20240829, end: 20240829
  423. TRAMADOL [Concomitant]
     Active Substance: TRAMADOL
     Dates: start: 20240829, end: 20240829
  424. TRAMADOL [Concomitant]
     Active Substance: TRAMADOL
     Route: 048
     Dates: start: 20240829, end: 20240829
  425. TRAMADOL [Concomitant]
     Active Substance: TRAMADOL
     Route: 048
     Dates: start: 20240929, end: 20240930
  426. TRAMADOL [Concomitant]
     Active Substance: TRAMADOL
     Dates: start: 20240929, end: 20240930
  427. TRAMADOL [Concomitant]
     Active Substance: TRAMADOL
     Dates: start: 20240929, end: 20240930
  428. TRAMADOL [Concomitant]
     Active Substance: TRAMADOL
     Route: 048
     Dates: start: 20240929, end: 20240930
  429. TRANEXAMIC ACID [Concomitant]
     Active Substance: TRANEXAMIC ACID
     Indication: Epistaxis
     Dosage: 500 MILLIGRAM, TID
     Dates: start: 20240814, end: 20240820
  430. TRANEXAMIC ACID [Concomitant]
     Active Substance: TRANEXAMIC ACID
     Dosage: 500 MILLIGRAM, TID
     Dates: start: 20240814, end: 20240820
  431. TRANEXAMIC ACID [Concomitant]
     Active Substance: TRANEXAMIC ACID
     Dosage: 500 MILLIGRAM, TID
     Route: 042
     Dates: start: 20240814, end: 20240820
  432. TRANEXAMIC ACID [Concomitant]
     Active Substance: TRANEXAMIC ACID
     Dosage: 500 MILLIGRAM, TID
     Route: 042
     Dates: start: 20240814, end: 20240820
  433. TRANEXAMIC ACID [Concomitant]
     Active Substance: TRANEXAMIC ACID
     Dates: start: 20240821, end: 20240821
  434. TRANEXAMIC ACID [Concomitant]
     Active Substance: TRANEXAMIC ACID
     Dates: start: 20240821, end: 20240821
  435. TRANEXAMIC ACID [Concomitant]
     Active Substance: TRANEXAMIC ACID
     Route: 042
     Dates: start: 20240821, end: 20240821
  436. TRANEXAMIC ACID [Concomitant]
     Active Substance: TRANEXAMIC ACID
     Route: 042
     Dates: start: 20240821, end: 20240821
  437. IBUPROFEN [Concomitant]
     Active Substance: IBUPROFEN
     Indication: Pain
     Dates: start: 20240905, end: 20240905
  438. IBUPROFEN [Concomitant]
     Active Substance: IBUPROFEN
     Route: 048
     Dates: start: 20240905, end: 20240905
  439. IBUPROFEN [Concomitant]
     Active Substance: IBUPROFEN
     Route: 048
     Dates: start: 20240905, end: 20240905
  440. IBUPROFEN [Concomitant]
     Active Substance: IBUPROFEN
     Dates: start: 20240905, end: 20240905
  441. METAMIZOLE [Concomitant]
     Active Substance: METAMIZOLE
     Indication: Encephalopathy
     Dates: start: 20240815, end: 20240916
  442. METAMIZOLE [Concomitant]
     Active Substance: METAMIZOLE
     Route: 042
     Dates: start: 20240815, end: 20240916
  443. METAMIZOLE [Concomitant]
     Active Substance: METAMIZOLE
     Route: 042
     Dates: start: 20240815, end: 20240916
  444. METAMIZOLE [Concomitant]
     Active Substance: METAMIZOLE
     Dates: start: 20240815, end: 20240916
  445. MICAFUNGIN [Concomitant]
     Active Substance: MICAFUNGIN SODIUM
     Indication: Pain
     Dosage: 200 MILLIGRAM, BIWEEKLY (400 MG, QW)
     Dates: start: 20240809, end: 20240830
  446. MICAFUNGIN [Concomitant]
     Active Substance: MICAFUNGIN SODIUM
     Dosage: 200 MILLIGRAM, BIWEEKLY (400 MG, QW)
     Dates: start: 20240809, end: 20240830
  447. MICAFUNGIN [Concomitant]
     Active Substance: MICAFUNGIN SODIUM
     Dosage: 200 MILLIGRAM, BIWEEKLY (400 MG, QW)
     Route: 042
     Dates: start: 20240809, end: 20240830
  448. MICAFUNGIN [Concomitant]
     Active Substance: MICAFUNGIN SODIUM
     Dosage: 200 MILLIGRAM, BIWEEKLY (400 MG, QW)
     Route: 042
     Dates: start: 20240809, end: 20240830
  449. MICAFUNGIN [Concomitant]
     Active Substance: MICAFUNGIN SODIUM
     Dosage: 200 MILLIGRAM, FREQUENCY: 3 DAYS
     Dates: start: 20240910, end: 20240913
  450. MICAFUNGIN [Concomitant]
     Active Substance: MICAFUNGIN SODIUM
     Dosage: 200 MILLIGRAM, FREQUENCY: 3 DAYS
     Dates: start: 20240910, end: 20240913
  451. MICAFUNGIN [Concomitant]
     Active Substance: MICAFUNGIN SODIUM
     Dosage: 200 MILLIGRAM, FREQUENCY: 3 DAYS
     Route: 042
     Dates: start: 20240910, end: 20240913
  452. MICAFUNGIN [Concomitant]
     Active Substance: MICAFUNGIN SODIUM
     Dosage: 200 MILLIGRAM, FREQUENCY: 3 DAYS
     Route: 042
     Dates: start: 20240910, end: 20240913
  453. MICAFUNGIN [Concomitant]
     Active Substance: MICAFUNGIN SODIUM
     Dosage: 200 MILLIGRAM, Q3D
     Dates: start: 20240910, end: 20240913
  454. MICAFUNGIN [Concomitant]
     Active Substance: MICAFUNGIN SODIUM
     Dosage: 200 MILLIGRAM, Q3D
     Route: 042
     Dates: start: 20240910, end: 20240913
  455. MICAFUNGIN [Concomitant]
     Active Substance: MICAFUNGIN SODIUM
     Dosage: 200 MILLIGRAM, Q3D
     Dates: start: 20240910, end: 20240913
  456. MICAFUNGIN [Concomitant]
     Active Substance: MICAFUNGIN SODIUM
     Dosage: 200 MILLIGRAM, Q3D
     Route: 042
     Dates: start: 20240910, end: 20240913
  457. MICAFUNGIN [Concomitant]
     Active Substance: MICAFUNGIN SODIUM
     Dosage: 100 MILLIGRAM, QD
     Dates: start: 20240918, end: 20240918
  458. MICAFUNGIN [Concomitant]
     Active Substance: MICAFUNGIN SODIUM
     Dosage: 100 MILLIGRAM, QD
     Dates: start: 20240918, end: 20240918
  459. MICAFUNGIN [Concomitant]
     Active Substance: MICAFUNGIN SODIUM
     Dosage: 100 MILLIGRAM, QD
     Route: 042
     Dates: start: 20240918, end: 20240918
  460. MICAFUNGIN [Concomitant]
     Active Substance: MICAFUNGIN SODIUM
     Dosage: 100 MILLIGRAM, QD
     Route: 042
     Dates: start: 20240918, end: 20240918
  461. MICAFUNGIN [Concomitant]
     Active Substance: MICAFUNGIN SODIUM
     Dosage: 100 MILLIGRAM, QD
     Dates: start: 20240916, end: 20240917
  462. MICAFUNGIN [Concomitant]
     Active Substance: MICAFUNGIN SODIUM
     Dosage: 100 MILLIGRAM, QD
     Dates: start: 20240916, end: 20240917
  463. MICAFUNGIN [Concomitant]
     Active Substance: MICAFUNGIN SODIUM
     Dosage: 100 MILLIGRAM, QD
     Route: 042
     Dates: start: 20240916, end: 20240917
  464. MICAFUNGIN [Concomitant]
     Active Substance: MICAFUNGIN SODIUM
     Dosage: 100 MILLIGRAM, QD
     Route: 042
     Dates: start: 20240916, end: 20240917
  465. MICAFUNGIN [Concomitant]
     Active Substance: MICAFUNGIN SODIUM
     Dosage: 200 MILLIGRAM, BIW
     Dates: start: 20240809, end: 20240830
  466. MICAFUNGIN [Concomitant]
     Active Substance: MICAFUNGIN SODIUM
     Dosage: 200 MILLIGRAM, BIW
     Dates: start: 20240809, end: 20240830
  467. MICAFUNGIN [Concomitant]
     Active Substance: MICAFUNGIN SODIUM
     Dosage: 200 MILLIGRAM, BIW
     Route: 042
     Dates: start: 20240809, end: 20240830
  468. MICAFUNGIN [Concomitant]
     Active Substance: MICAFUNGIN SODIUM
     Dosage: 200 MILLIGRAM, BIW
     Route: 042
     Dates: start: 20240809, end: 20240830
  469. MICAFUNGIN [Concomitant]
     Active Substance: MICAFUNGIN SODIUM
     Dosage: 200 MILLIGRAM, BIW
     Dates: start: 20240910, end: 20240913
  470. MICAFUNGIN [Concomitant]
     Active Substance: MICAFUNGIN SODIUM
     Dosage: 200 MILLIGRAM, BIW
     Dates: start: 20240910, end: 20240913
  471. MICAFUNGIN [Concomitant]
     Active Substance: MICAFUNGIN SODIUM
     Dosage: 200 MILLIGRAM, BIW
     Route: 042
     Dates: start: 20240910, end: 20240913
  472. MICAFUNGIN [Concomitant]
     Active Substance: MICAFUNGIN SODIUM
     Dosage: 200 MILLIGRAM, BIW
     Route: 042
     Dates: start: 20240910, end: 20240913
  473. TRAMADOL [Concomitant]
     Active Substance: TRAMADOL
     Indication: Pain
  474. TRAMADOL [Concomitant]
     Active Substance: TRAMADOL
     Route: 048
  475. TRAMADOL [Concomitant]
     Active Substance: TRAMADOL
     Route: 048
  476. TRAMADOL [Concomitant]
     Active Substance: TRAMADOL

REACTIONS (3)
  - Sepsis [Recovered/Resolved]
  - Febrile neutropenia [Unknown]
  - Off label use [Unknown]

NARRATIVE: CASE EVENT DATE: 20240916
